FAERS Safety Report 5976072-X (Version None)
Quarter: 2008Q4

REPORT INFORMATION
  Report Type: 
  Country: None (occurrence: None)
  Receive Date: 20081202
  Receipt Date: 20081124
  Transmission Date: 20090506
  Serious: Yes (Hospitalization)
  Sender: FDA-Public Use
  Company Number: FR-WYE-G02631508

PATIENT
  Sex: Male

DRUGS (2)
  1. ADVIL [Suspect]
     Indication: PAIN IN EXTREMITY
     Dosage: UNKNOWN
     Route: 048
     Dates: start: 20081024, end: 20081031
  2. ZELITREX [Concomitant]
     Dosage: UNKNOWN
     Route: 048
     Dates: start: 20081024, end: 20081031

REACTIONS (16)
  - AORTIC ANEURYSM [None]
  - AORTIC VALVE INCOMPETENCE [None]
  - CARDIAC VALVE ABSCESS [None]
  - CONDITION AGGRAVATED [None]
  - ENDOCARDITIS BACTERIAL [None]
  - ERYSIPELAS [None]
  - HAEMORRHAGIC STROKE [None]
  - HEMIPLEGIA [None]
  - INFECTIVE ANEURYSM [None]
  - INFLAMMATION [None]
  - INTRACRANIAL ANEURYSM [None]
  - NEUTROPHIL COUNT INCREASED [None]
  - OSTEOMYELITIS [None]
  - SPLENIC INFARCTION [None]
  - STREPTOCOCCAL INFECTION [None]
  - WHITE BLOOD CELL COUNT INCREASED [None]
